FAERS Safety Report 5371017-8 (Version None)
Quarter: 2007Q2

REPORT INFORMATION
  Report Type: 
  Country: None (occurrence: None)
  Receive Date: 20070626
  Receipt Date: 20070614
  Transmission Date: 20071010
  Serious: Yes (Other)
  Sender: FDA-Public Use
  Company Number: US-PFIZER INC-2007040651

PATIENT
  Age: 78 Year
  Sex: Female

DRUGS (2)
  1. NEURONTIN [Suspect]
     Indication: SCIATICA
  2. NEURONTIN [Suspect]
     Indication: NEUROPATHY

REACTIONS (3)
  - RASH GENERALISED [None]
  - VAGINAL MUCOSAL BLISTERING [None]
  - VULVOVAGINAL PRURITUS [None]
